FAERS Safety Report 6488138-9 (Version None)
Quarter: 2009Q4

REPORT INFORMATION
  Report Type: 
  Country: None (occurrence: None)
  Receive Date: 20091210
  Receipt Date: 20091201
  Transmission Date: 20100525
  Serious: Yes (Hospitalization)
  Sender: FDA-Public Use
  Company Number: A0812055A

PATIENT
  Sex: Female
  Weight: 48 kg

DRUGS (4)
  1. LAPATINIB [Suspect]
     Indication: BREAST CANCER
     Dosage: 1500MG PER DAY
     Route: 048
     Dates: start: 20090922
  2. PACLITAXEL [Suspect]
     Indication: BREAST CANCER
     Dosage: 80MGM2 WEEKLY
     Route: 042
     Dates: start: 20090921
  3. ENALAPRIL [Concomitant]
     Dosage: 10MG PER DAY
     Route: 048
  4. PROPRANOLOL [Concomitant]
     Route: 048
     Dates: end: 20091014

REACTIONS (4)
  - CHEST PAIN [None]
  - DYSPNOEA [None]
  - HEADACHE [None]
  - PALPITATIONS [None]
